FAERS Safety Report 13901549 (Version 1)
Quarter: 2017Q3

REPORT INFORMATION
  Report Type: Other
  Country: US (occurrence: US)
  Receive Date: 20170824
  Receipt Date: 20170824
  Transmission Date: 20171127
  Serious: Yes (Hospitalization)
  Sender: FDA-Public Use
  Company Number: US-NAVINTA LLC-000009

PATIENT
  Age: 8 Year
  Sex: Male

DRUGS (27)
  1. NICARDIPINE [Suspect]
     Active Substance: NICARDIPINE
     Indication: HYPERTENSION
     Dosage: 1 MCG/KG/MIN
  2. CYCLOPHOSPHAMIDE/MESNA [Concomitant]
     Indication: BURKITT^S LYMPHOMA
     Dosage: ON TREATMENT DAY 1 TAKEN WITH CYCLOPHOSPHAMIDE AND 3 HR AFTER START OF CYCLOPHOSPHAMIDE
     Route: 042
  3. DOXORUBICIN [Concomitant]
     Active Substance: DOXORUBICIN
     Indication: BURKITT^S LYMPHOMA
     Dosage: ON TREATMENT DAY 4, 50 MG/M2 INTRAVENOUS AT A 1 DOSE
     Route: 042
  4. FOLINIC ACID [Concomitant]
     Active Substance: LEUCOVORIN
     Indication: PRODUCT USED FOR UNKNOWN INDICATION
     Dosage: ONCE FOR EVERY SIX HOURS
     Route: 042
  5. VINCRISTINE [Concomitant]
     Active Substance: VINCRISTINE
     Indication: BURKITT^S LYMPHOMA
     Dosage: ON TREATMENT DAY 11, 1.5 MG/M2 INTRAVENOUS AT 1 DOSE
     Route: 042
  6. AMLODIPINE [Suspect]
     Active Substance: AMLODIPINE BESYLATE
     Indication: HYPERTENSION
     Dosage: DAILY THROUGH NASOGASTRIC?TUBE
  7. CYCLOPHOSPHAMIDE/CYCLOPHOSPHAMIDE MONOHYDRATE [Concomitant]
     Indication: BURKITT^S LYMPHOMA
     Dosage: ON TREATMENT DAY 1 300 MG/M2 FOR EVERY 12 HOURS SIX DOSES
     Route: 042
  8. THIAMINE. [Concomitant]
     Active Substance: THIAMINE
     Indication: PRODUCT USED FOR UNKNOWN INDICATION
     Dosage: ONCE FOR EVERY 24 HOURS
     Route: 048
  9. CEFEPIME [Concomitant]
     Active Substance: CEFEPIME HYDROCHLORIDE
     Indication: PRODUCT USED FOR UNKNOWN INDICATION
     Dosage: ONCE FOR EVERY 24 HOURS
     Route: 042
  10. DIPHENHYDRAMINE. [Concomitant]
     Active Substance: DIPHENHYDRAMINE
     Indication: PRODUCT USED FOR UNKNOWN INDICATION
     Dosage: FOR EVERY ONCE 8 HOURS AS REQUIRED
     Route: 042
  11. LIDOCAINE/PRILOCAINE [Concomitant]
     Indication: PRODUCT USED FOR UNKNOWN INDICATION
     Dosage: LIDOCAINE 2.5 PERCENT AND PRILOCAINE 2.5 PERCENT
     Route: 061
  12. VECURONIUM [Concomitant]
     Active Substance: VECURONIUM BROMIDE
     Indication: PRODUCT USED FOR UNKNOWN INDICATION
     Dosage: FOR EVERY ONCE ONE HOUR AS REQUIRED
     Route: 042
  13. VINCRISTINE [Concomitant]
     Active Substance: VINCRISTINE
     Indication: BURKITT^S LYMPHOMA
     Dosage: ON TREATMENT DAY 4 1.5 MG/M2 INTRAVENOUS 1 DOSE
     Route: 042
  14. MIDAZOLAM [Concomitant]
     Active Substance: MIDAZOLAM HYDROCHLORIDE
     Indication: PRODUCT USED FOR UNKNOWN INDICATION
     Dosage: INFUSION TITRATED TO MAINTAIN SEDATION AND 4 MG ONCE EVERY ONE HOUR AS REQUIRED
     Route: 042
  15. DEXAMETHASONE. [Concomitant]
     Active Substance: DEXAMETHASONE
     Indication: BURKITT^S LYMPHOMA
     Dosage: ON TREATMENT DAY 1 10 MG/M2/DAY FOR EVERY 12 HOURS
     Route: 042
  16. HEPARIN [Concomitant]
     Active Substance: HEPARIN SODIUM
     Indication: PRODUCT USED FOR UNKNOWN INDICATION
     Dosage: 2 UNITS/ML AT 3 ML/HR TO MAINTAIN CENTRAL VENOUS LINE
  17. METHOTREXATE. [Concomitant]
     Active Substance: METHOTREXATE
     Indication: BURKITT^S LYMPHOMA
     Dosage: ON TREATMENT DAY 2, 12 MG/M2 AT 1 DOSE
     Route: 037
  18. CYTARABINE/CYTARABINE HYDROCHLORIDE/CYTARABINE OCFOSFATE [Concomitant]
     Indication: BURKITT^S LYMPHOMA
     Dosage: ON TREATMENT DAY 2, 50 MG/M2 AT 1 DOSE
     Route: 037
  19. BACITRACIN. [Concomitant]
     Active Substance: BACITRACIN
     Indication: PRODUCT USED FOR UNKNOWN INDICATION
     Dosage: THRICE DAILY
     Route: 061
  20. FAMOTIDINE. [Concomitant]
     Active Substance: FAMOTIDINE
     Indication: PRODUCT USED FOR UNKNOWN INDICATION
     Dosage: ONCE FOR EVERY 24 HOURS
     Route: 042
  21. FENTANYL. [Concomitant]
     Active Substance: FENTANYL
     Indication: PRODUCT USED FOR UNKNOWN INDICATION
     Dosage: FOR EVERY 2 HOURS AS REQUIRED
     Route: 042
  22. FLUCONAZOLE. [Concomitant]
     Active Substance: FLUCONAZOLE
     Indication: PRODUCT USED FOR UNKNOWN INDICATION
     Dosage: ONCE FOR EVERY 24 HOURS
     Route: 042
  23. ONDANSETRON [Concomitant]
     Active Substance: ONDANSETRON
     Indication: PRODUCT USED FOR UNKNOWN INDICATION
     Dosage: ONCE FOR EVERY 6 HOURS AS REQUIRED
     Route: 042
  24. SULFAMETHOXAZOLE/TRIMETHOPRIM [Concomitant]
     Indication: PRODUCT USED FOR UNKNOWN INDICATION
     Dosage: TRIMETHOPRIM 40 MG/5 ML AND SULFAMETHOXAZOLE 200 MG/5 ML, 5 ML FOR EVERY 12 HRS 3 CONSECUTIVE DAY
  25. MORPHINE [Concomitant]
     Active Substance: MORPHINE
     Indication: PRODUCT USED FOR UNKNOWN INDICATION
     Dosage: ONCE EVERY ONE HOUR AS REQUIRED
     Route: 042
  26. VANCOMYCIN [Concomitant]
     Active Substance: VANCOMYCIN
     Indication: PRODUCT USED FOR UNKNOWN INDICATION
     Dosage: DOSED INTERMITTENTLY
     Route: 042
  27. METHOTREXATE. [Concomitant]
     Active Substance: METHOTREXATE
     Indication: BURKITT^S LYMPHOMA
     Dosage: ON TREATMENT DAY 11 ,12 MG/M2 OF 1 DOSE
     Route: 037

REACTIONS (1)
  - Angioedema [Recovered/Resolved]
